FAERS Safety Report 25530685 (Version 1)
Quarter: 2025Q3

REPORT INFORMATION
  Report Type: Spontaneous
  Country: US (occurrence: None)
  Receive Date: 20250708
  Receipt Date: 20250708
  Transmission Date: 20251020
  Serious: Yes (Death)
  Sender: FDA-CTU
  Company Number: None

PATIENT
  Age: 67 Year
  Sex: Female

DRUGS (15)
  1. ACTEMRA ACTPEN [Suspect]
     Active Substance: TOCILIZUMAB
     Indication: Giant cell arteritis
     Route: 058
     Dates: start: 20230929, end: 20250530
  2. OYSTER SHELL CA 500MG W/VIT D TABS [Concomitant]
  3. ATORVASTATIN 80MG TABLETS [Concomitant]
  4. CARVEDILOL 12.5MG TABLETS [Concomitant]
  5. ELIQUIS [Concomitant]
     Active Substance: APIXABAN
  6. JARDIANCE [Concomitant]
     Active Substance: EMPAGLIFLOZIN
  7. MIRALAX 3350 POWDER PACKETS [Concomitant]
  8. OMEPRAZOLE [Concomitant]
     Active Substance: OMEPRAZOLE
  9. ONE TOUCH VERIO TEST ST(NEW)100S [Concomitant]
  10. SENNA 8.6MG TABLETS [Concomitant]
  11. TRULICITY 4.5MG/0.5ML INJ (4 PENS) [Concomitant]
  12. VITAMIN D3 2,000IU TABLETS [Concomitant]
  13. LISINOPRIL [Concomitant]
     Active Substance: LISINOPRIL
  14. CENTRUM SILVER TABLETS [Concomitant]
  15. CETIRIZINE [Concomitant]
     Active Substance: CETIRIZINE HYDROCHLORIDE

REACTIONS (1)
  - Death [None]
